FAERS Safety Report 19660361 (Version 1)
Quarter: 2021Q3

REPORT INFORMATION
  Report Type: Spontaneous
  Country: US (occurrence: US)
  Receive Date: 20210804
  Receipt Date: 20210804
  Transmission Date: 20211014
  Serious: Yes (Hospitalization)
  Sender: FDA-Public Use
  Company Number: None

PATIENT
  Age: 44 Year
  Sex: Male
  Weight: 73.94 kg

DRUGS (7)
  1. HYDROCORTISONE. [Concomitant]
     Active Substance: HYDROCORTISONE
  2. BRAFTOVI [Suspect]
     Active Substance: ENCORAFENIB
     Indication: MALIGNANT MELANOMA
     Route: 048
     Dates: start: 20210105
  3. ASPIRIN. [Concomitant]
     Active Substance: ASPIRIN
  4. METOPROLOL. [Concomitant]
     Active Substance: METOPROLOL
  5. MEKTOVI [Suspect]
     Active Substance: BINIMETINIB
     Indication: MALIGNANT MELANOMA
     Route: 048
     Dates: start: 20210105
  6. KETOCONAZOLE. [Concomitant]
     Active Substance: KETOCONAZOLE
  7. EPINEPHRINE. [Concomitant]
     Active Substance: EPINEPHRINE

REACTIONS (4)
  - Haematochezia [None]
  - Feeding disorder [None]
  - Clostridium difficile infection [None]
  - Faeces discoloured [None]

NARRATIVE: CASE EVENT DATE: 20210729
